FAERS Safety Report 14663013 (Version 1)
Quarter: 2018Q1

REPORT INFORMATION
  Report Type: Spontaneous
  Country: None (occurrence: FR)
  Receive Date: 20180321
  Receipt Date: 20180321
  Transmission Date: 20180509
  Serious: Yes (Other)
  Sender: FDA-Public Use
  Company Number: FR-MERCK KGAA-2044193

PATIENT
  Sex: Female

DRUGS (3)
  1. NOVOTHYROX [Suspect]
     Active Substance: LEVOTHYROXINE SODIUM
     Indication: PRODUCT USED FOR UNKNOWN INDICATION
     Dates: end: 201709
  2. NOVOTHYROX [Suspect]
     Active Substance: LEVOTHYROXINE SODIUM
     Dates: start: 201710
  3. NOVOTHYROX [Suspect]
     Active Substance: LEVOTHYROXINE SODIUM
     Dates: start: 201709

REACTIONS (20)
  - Dizziness [None]
  - Agitation [None]
  - Aggression [None]
  - Blood thyroid stimulating hormone increased [None]
  - Arthralgia [None]
  - Fatigue [None]
  - Depression [None]
  - Loss of personal independence in daily activities [None]
  - Loss of libido [None]
  - Dry skin [None]
  - Impaired work ability [None]
  - Apathy [None]
  - Disturbance in attention [None]
  - Personal relationship issue [None]
  - Muscle spasms [None]
  - Alopecia [None]
  - Myalgia [None]
  - Screaming [None]
  - Anti-thyroid antibody positive [None]
  - Blood thyroid stimulating hormone decreased [None]

NARRATIVE: CASE EVENT DATE: 20170615
